FAERS Safety Report 18843264 (Version 2)
Quarter: 2021Q1

REPORT INFORMATION
  Report Type: Spontaneous
  Country: CA (occurrence: CA)
  Receive Date: 20210203
  Receipt Date: 20210311
  Transmission Date: 20210419
  Serious: Yes (Death)
  Sender: FDA-Public Use
  Company Number: CA-009507513-2101CAN013593

PATIENT
  Age: 67 Year
  Sex: Male
  Weight: 75 kg

DRUGS (4)
  1. TENOFOVIR [Concomitant]
     Active Substance: TENOFOVIR
     Dosage: DOSAGE FORM: NOT SPECIFIED
  2. KEYTRUDA [Suspect]
     Active Substance: PEMBROLIZUMAB
     Indication: NEOPLASM MALIGNANT
     Dosage: 1 EVERY 3 WEEKS; DOSAGE FORM: NOT SPECIFIED
     Route: 042
  3. AMLODIPINE [Concomitant]
     Active Substance: AMLODIPINE BESYLATE
     Dosage: UNK
  4. PANTOLOC [Concomitant]
     Active Substance: PANTOPRAZOLE SODIUM
     Dosage: UNK

REACTIONS (7)
  - Cardiomyopathy [Fatal]
  - Cardiac failure congestive [Fatal]
  - Atrioventricular block [Fatal]
  - Autoimmune myocarditis [Fatal]
  - Ventricular tachycardia [Fatal]
  - Right ventricular dilatation [Fatal]
  - Systolic dysfunction [Fatal]
